FAERS Safety Report 23462693 (Version 1)
Quarter: 2024Q1

REPORT INFORMATION
  Report Type: Spontaneous
  Country: US (occurrence: None)
  Receive Date: 20240107
  Receipt Date: 20240107
  Transmission Date: 20240410
  Serious: No
  Sender: FDA-Public Use
  Company Number: None

PATIENT
  Age: 37 Year
  Sex: Male
  Weight: 76.5 kg

DRUGS (5)
  1. ANTICOAGULANT CITRATE DEXTROSE (ACD-A) [Suspect]
     Active Substance: CITRIC ACID MONOHYDRATE\DEXTROSE MONOHYDRATE\SODIUM CITRATE
     Indication: Product used for unknown indication
     Route: 042
  2. CITALOPRAM [Concomitant]
  3. CYCLOSPORINE [Concomitant]
  4. cyclobenaprine [Concomitant]
  5. indomethacin/ibuprofen [Concomitant]

REACTIONS (3)
  - Back pain [None]
  - Mobility decreased [None]
  - Pain in jaw [None]

NARRATIVE: CASE EVENT DATE: 20221220
